FAERS Safety Report 4567101-9 (Version None)
Quarter: 2005Q1

REPORT INFORMATION
  Report Type: 
  Country: None (occurrence: None)
  Receive Date: 20050126
  Receipt Date: 20050106
  Transmission Date: 20050727
  Serious: Yes (Other)
  Sender: FDA-Public Use
  Company Number: USA041287121

PATIENT
  Sex: Male
  Weight: 100 kg

DRUGS (2)
  1. HUMALOG [Suspect]
     Dates: start: 19970101
  2. LANTUS [Concomitant]

REACTIONS (5)
  - CATARACT OPERATION [None]
  - DIABETIC RETINOPATHY [None]
  - EYE HAEMORRHAGE [None]
  - VISUAL ACUITY REDUCED [None]
  - WEIGHT INCREASED [None]
